FAERS Safety Report 8834490 (Version 1)
Quarter: 2012Q4

REPORT INFORMATION
  Report Type: Report from Study
  Country: KR (occurrence: KR)
  Receive Date: 20121010
  Receipt Date: 20121010
  Transmission Date: 20130627
  Serious: Yes (Hospitalization)
  Sender: FDA-Public Use
  Company Number: PHHY2012KR088853

PATIENT
  Age: 12 Year
  Sex: Female
  Weight: 48 kg

DRUGS (3)
  1. ICL670A [Suspect]
     Indication: IRON OVERLOAD
     Dosage: 1000 mg, daily
     Route: 048
     Dates: start: 20080425, end: 20080509
  2. ICL670A [Suspect]
     Dosage: 1000 mg, daily
     Route: 048
     Dates: start: 20080521, end: 20080714
  3. ICL670A [Suspect]
     Dosage: 1000 mg, daily
     Route: 048
     Dates: start: 20080913

REACTIONS (1)
  - Otitis media [Recovered/Resolved]
